FAERS Safety Report 25711787 (Version 1)
Quarter: 2025Q3

REPORT INFORMATION
  Report Type: Spontaneous
  Country: EU (occurrence: EU)
  Receive Date: 20250821
  Receipt Date: 20250821
  Transmission Date: 20251020
  Serious: Yes (Other)
  Sender: MYLAN
  Company Number: EU-002147023-NVSC2024ES146155

PATIENT
  Age: 47 Year
  Sex: Female

DRUGS (15)
  1. GEMCITABINE [Suspect]
     Active Substance: GEMCITABINE
     Indication: Endometrial stromal sarcoma
  2. GEMCITABINE [Suspect]
     Active Substance: GEMCITABINE
     Indication: Disease progression
  3. PAZOPANIB [Suspect]
     Active Substance: PAZOPANIB
     Indication: Disease progression
     Dosage: 800 MILLIGRAM, QD
  4. DOCETAXEL [Suspect]
     Active Substance: DOCETAXEL
     Indication: Disease progression
  5. DOCETAXEL [Suspect]
     Active Substance: DOCETAXEL
     Indication: Endometrial stromal sarcoma
  6. DEXRAZOXANE [Suspect]
     Active Substance: DEXRAZOXANE
     Indication: Disease progression
  7. DEXRAZOXANE [Suspect]
     Active Substance: DEXRAZOXANE
     Indication: Endometrial stromal sarcoma
  8. EPIRUBICIN [Suspect]
     Active Substance: EPIRUBICIN
     Indication: Disease progression
  9. EPIRUBICIN [Suspect]
     Active Substance: EPIRUBICIN
     Indication: Endometrial stromal sarcoma
  10. OLARATUMAB [Suspect]
     Active Substance: OLARATUMAB
     Indication: Disease progression
  11. OLARATUMAB [Suspect]
     Active Substance: OLARATUMAB
     Indication: Endometrial stromal sarcoma
  12. IFOSFAMIDE [Suspect]
     Active Substance: IFOSFAMIDE
     Indication: Endometrial stromal sarcoma
  13. IFOSFAMIDE [Suspect]
     Active Substance: IFOSFAMIDE
     Indication: Disease progression
  14. TRABECTEDIN [Concomitant]
     Active Substance: TRABECTEDIN
     Indication: Disease progression
  15. DACARBAZINE [Concomitant]
     Active Substance: DACARBAZINE
     Indication: Disease progression

REACTIONS (3)
  - Endometrial stromal sarcoma [Unknown]
  - Malignant neoplasm progression [Unknown]
  - Product use in unapproved indication [Unknown]
